FAERS Safety Report 8066834-X (Version None)
Quarter: 2012Q1

REPORT INFORMATION
  Report Type: 
  Country: None (occurrence: None)
  Receive Date: 20120124
  Receipt Date: 20120124
  Transmission Date: 20120608
  Serious: Yes (Hospitalization)
  Sender: FDA-Public Use
  Company Number: PHHO2011US02082

PATIENT
  Sex: Female

DRUGS (6)
  1. ETOPOSIDE [Suspect]
  2. ILARIS [Suspect]
     Indication: JUVENILE ARTHRITIS
     Dosage: UNK
     Dates: end: 20101027
  3. CYCLOSPORINE [Suspect]
  4. STEROIDS NOS [Suspect]
  5. DIURETICS [Concomitant]
  6. CALCIUM CHANNEL BLOCKERS [Concomitant]

REACTIONS (7)
  - FUNGAL INFECTION [None]
  - ENDOTRACHEAL INTUBATION [None]
  - RESPIRATORY DISTRESS [None]
  - LYMPHADENOPATHY MEDIASTINAL [None]
  - STAPHYLOCOCCAL INFECTION [None]
  - PYREXIA [None]
  - EXTUBATION [None]
